FAERS Safety Report 11397461 (Version 1)
Quarter: 2015Q3

REPORT INFORMATION
  Report Type: Report from Study
  Country: CN (occurrence: CN)
  Receive Date: 20150819
  Receipt Date: 20150819
  Transmission Date: 20151125
  Serious: Yes (Hospitalization)
  Sender: FDA-Public Use
  Company Number: CN-ASTRAZENECA-2015SE77928

PATIENT
  Age: 23803 Day
  Sex: Male

DRUGS (12)
  1. AZD2281 [Suspect]
     Active Substance: OLAPARIB
     Indication: GASTRIC CANCER
     Route: 048
     Dates: start: 20150610, end: 20150614
  2. AZD2281 [Suspect]
     Active Substance: OLAPARIB
     Indication: GASTRIC CANCER
     Route: 048
     Dates: start: 20150618, end: 20150618
  3. PACLITAXEL. [Suspect]
     Active Substance: PACLITAXEL
     Indication: GASTRIC CANCER
     Dosage: 80 MG/M2 IV INFUSION ON DAYS 1, 8 AND 15 OF A 28 DAY CYCLE
     Route: 042
     Dates: start: 20150623, end: 20150623
  4. AZD2281 [Suspect]
     Active Substance: OLAPARIB
     Indication: GASTRIC CANCER
     Route: 048
     Dates: start: 20150721
  5. AZD2281 [Suspect]
     Active Substance: OLAPARIB
     Indication: GASTRIC CANCER
     Route: 048
     Dates: start: 20150622
  6. PACLITAXEL. [Suspect]
     Active Substance: PACLITAXEL
     Indication: GASTRIC CANCER
     Dosage: 80 MG/M2 IV INFUSION ON DAYS 1, 8 AND 15 OF A 28 DAY CYCLE
     Route: 042
     Dates: start: 20150527, end: 20150527
  7. PACLITAXEL. [Suspect]
     Active Substance: PACLITAXEL
     Indication: GASTRIC CANCER
     Dosage: 80 MG/M2 IV INFUSION ON DAYS 1, 8 AND 15 OF A 28 DAY CYCLE
     Route: 042
     Dates: start: 20150714, end: 20150714
  8. CELECOXIB. [Concomitant]
     Active Substance: CELECOXIB
     Indication: ANALGESIC THERAPY
     Route: 048
     Dates: start: 20150527
  9. AZD2281 [Suspect]
     Active Substance: OLAPARIB
     Indication: GASTRIC CANCER
     Route: 048
     Dates: start: 20150620, end: 20150620
  10. PACLITAXEL. [Suspect]
     Active Substance: PACLITAXEL
     Indication: GASTRIC CANCER
     Dosage: 80 MG/M2 IV INFUSION ON DAYS 1, 8 AND 15 OF A 28 DAY CYCLE
     Route: 042
     Dates: start: 20150610, end: 20150610
  11. AZD2281 [Suspect]
     Active Substance: OLAPARIB
     Indication: GASTRIC CANCER
     Route: 048
     Dates: start: 20150527, end: 20150601
  12. IRON POLYSACCHARIDE COMPLEX [Concomitant]
     Indication: ANAEMIA
     Route: 048
     Dates: start: 20150610

REACTIONS (1)
  - Hypoproteinaemia [Recovering/Resolving]

NARRATIVE: CASE EVENT DATE: 20150810
